FAERS Safety Report 8228381-1 (Version None)
Quarter: 2012Q1

REPORT INFORMATION
  Report Type: 
  Country: None (occurrence: None)
  Receive Date: 20120322
  Receipt Date: 20110816
  Transmission Date: 20120608
  Serious: Yes (Hospitalization)
  Sender: FDA-Public Use
  Company Number: US-BRISTOL-MYERS SQUIBB COMPANY-15975428

PATIENT
  Age: 6 Decade
  Sex: Male

DRUGS (3)
  1. ERBITUX [Suspect]
     Indication: HEAD AND NECK CANCER
     Dates: start: 20110815
  2. STEROIDS [Concomitant]
     Indication: LUNG DISORDER
  3. ALBUTEROL [Concomitant]
     Indication: LUNG DISORDER

REACTIONS (1)
  - HYPERSENSITIVITY [None]
